FAERS Safety Report 23968980 (Version 2)
Quarter: 2024Q2

REPORT INFORMATION
  Report Type: Spontaneous
  Country: US (occurrence: US)
  Receive Date: 20240612
  Receipt Date: 20240624
  Transmission Date: 20240715
  Serious: No
  Sender: FDA-Public Use
  Company Number: US-SA-SAC20240612000467

PATIENT
  Age: 31 Year
  Sex: Female

DRUGS (1)
  1. DUPIXENT [Suspect]
     Active Substance: DUPILUMAB
     Dosage: 300 MG, QOW
     Route: 058

REACTIONS (6)
  - Dry skin [Unknown]
  - Carpal tunnel syndrome [Recovering/Resolving]
  - Illness [Recovering/Resolving]
  - Pruritus [Recovering/Resolving]
  - Back pain [Recovering/Resolving]
  - Dry eye [Recovering/Resolving]
